FAERS Safety Report 9715293 (Version 1)
Quarter: 2013Q4

REPORT INFORMATION
  Report Type: Spontaneous
  Country: US (occurrence: US)
  Receive Date: 20131127
  Receipt Date: 20131127
  Transmission Date: 20140711
  Serious: Yes (Death, Other)
  Sender: FDA-Public Use
  Company Number: US-AMGEN-USASP2013082468

PATIENT
  Age: 66 Year
  Sex: Male

DRUGS (1)
  1. ARANESP [Suspect]
     Indication: PRODUCT USED FOR UNKNOWN INDICATION
     Dosage: 200 MUG, QWK
     Route: 065
     Dates: start: 20130329

REACTIONS (2)
  - Death [Fatal]
  - Acute myeloid leukaemia [Unknown]
